FAERS Safety Report 9419367 (Version 1)
Quarter: 2013Q3

REPORT INFORMATION
  Report Type: Spontaneous
  Country: US (occurrence: None)
  Receive Date: 20130724
  Receipt Date: 20130724
  Transmission Date: 20140515
  Serious: Yes (Hospitalization)
  Sender: FDA-Public Use
  Company Number: None

PATIENT
  Age: 66 Year
  Sex: Male
  Weight: 107.96 kg

DRUGS (1)
  1. SIPULEUCEL-T [Suspect]
     Indication: PROSTATE CANCER
     Dosage: ONE UNIT EOW X 3
     Route: 041
     Dates: start: 20130617, end: 20130715

REACTIONS (4)
  - Tremor [None]
  - Chills [None]
  - Chills [None]
  - Sepsis [None]
